FAERS Safety Report 7243982-5 (Version None)
Quarter: 2011Q1

REPORT INFORMATION
  Report Type: 
  Country: None (occurrence: None)
  Receive Date: 20110125
  Receipt Date: 20110121
  Transmission Date: 20110831
  Serious: Yes (Life-Threatening, Hospitalization)
  Sender: FDA-Public Use
  Company Number: PHHO2011GB01673

PATIENT
  Sex: Female
  Weight: 19 kg

DRUGS (3)
  1. DEXAMETHASONE [Concomitant]
     Dosage: 400 MG, BID
     Route: 048
     Dates: start: 20101214, end: 20110101
  2. STI571/CGP57148B [Suspect]
     Indication: ACUTE LYMPHOCYTIC LEUKAEMIA
     Dosage: 100 MG/200MG, ALTERNATE DAYS
     Route: 048
     Dates: start: 20101214, end: 20110103
  3. DOXORUBICIN [Concomitant]
     Dosage: 19 MG, UNK
     Route: 042
     Dates: start: 20101223, end: 20110105

REACTIONS (4)
  - HYPERNATRAEMIA [None]
  - SYSTEMIC CANDIDA [None]
  - PYREXIA [None]
  - FEBRILE NEUTROPENIA [None]
